FAERS Safety Report 20215994 (Version 1)
Quarter: 2021Q4

REPORT INFORMATION
  Report Type: Spontaneous
  Country: US (occurrence: US)
  Receive Date: 20211222
  Receipt Date: 20211222
  Transmission Date: 20220304
  Serious: Yes (Other)
  Sender: FDA-Public Use
  Company Number: US-LUPIN PHARMACEUTICALS INC.-2021-25233

PATIENT
  Age: 73 Year
  Sex: Female

DRUGS (3)
  1. NADOLOL [Suspect]
     Active Substance: NADOLOL
     Indication: Portal hypertension
     Dosage: UNK
     Route: 065
  2. PANTOPRAZOLE [Concomitant]
     Active Substance: PANTOPRAZOLE
     Indication: Gastritis haemorrhagic
     Dosage: UNK, BID (THERAPY COMPLETED)
     Route: 065
  3. OCTREOTIDE [Concomitant]
     Active Substance: OCTREOTIDE
     Indication: Gastritis haemorrhagic
     Dosage: UNK, BID (THERAPY COMPLETED)
     Route: 058

REACTIONS (1)
  - Hypotension [Unknown]
